FAERS Safety Report 7109828-0 (Version None)
Quarter: 2010Q4

REPORT INFORMATION
  Report Type: 
  Country: None (occurrence: None)
  Receive Date: 20101118
  Receipt Date: 20101112
  Transmission Date: 20110411
  Serious: Yes (Death, Other)
  Sender: FDA-Public Use
  Company Number: PHEH2010US02625

PATIENT
  Sex: Male

DRUGS (1)
  1. ZOMETA [Suspect]

REACTIONS (16)
  - ADRENAL MASS [None]
  - ANHEDONIA [None]
  - ANXIETY [None]
  - BREAST CANCER RECURRENT [None]
  - BREAST MASS [None]
  - CAROTID ARTERY DISEASE [None]
  - DEATH [None]
  - HEPATIC STEATOSIS [None]
  - INJURY [None]
  - METASTASES TO BONE [None]
  - METASTASES TO LIVER [None]
  - METASTASES TO SPINE [None]
  - METASTASES TO SPLEEN [None]
  - OSTEONECROSIS OF JAW [None]
  - PAIN [None]
  - PLEURAL EFFUSION [None]
